FAERS Safety Report 12922159 (Version 2)
Quarter: 2016Q4

REPORT INFORMATION
  Report Type: Spontaneous
  Country: US (occurrence: US)
  Receive Date: 20161108
  Receipt Date: 20161221
  Transmission Date: 20170207
  Serious: Yes (Other)
  Sender: FDA-Public Use
  Company Number: US-SA-2016SA199769

PATIENT
  Age: 57 Year
  Sex: Female
  Weight: 54.43 kg

DRUGS (4)
  1. LANTUS [Suspect]
     Active Substance: INSULIN GLARGINE
     Indication: TYPE 2 DIABETES MELLITUS
     Dosage: DOSE:14 UNIT(S)
     Route: 065
     Dates: start: 2009
  2. HUMALOG [Suspect]
     Active Substance: INSULIN LISPRO
     Route: 065
  3. THYROID [Concomitant]
     Active Substance: LEVOTHYROXINE\LIOTHYRONINE
  4. HUMULIN NOS [Suspect]
     Active Substance: INSULIN HUMAN
     Route: 065

REACTIONS (4)
  - Product use issue [Unknown]
  - Seizure [Not Recovered/Not Resolved]
  - Off label use [Unknown]
  - Blood glucose decreased [Unknown]

NARRATIVE: CASE EVENT DATE: 2009
